FAERS Safety Report 6336588-3 (Version None)
Quarter: 2009Q3

REPORT INFORMATION
  Report Type: 
  Country: None (occurrence: None)
  Receive Date: 20090831
  Receipt Date: 20090831
  Transmission Date: 20100115
  Serious: Yes (Other)
  Sender: FDA-Public Use
  Company Number: None

PATIENT
  Age: 58 Year
  Sex: Female
  Weight: 57.7 kg

DRUGS (1)
  1. HYDROXYCHLOROQUINE 200MG [Suspect]
     Indication: RHEUMATOID ARTHRITIS
     Dosage: 200MG BID PO  AT LEAST 2008 TO RECENT
     Route: 048

REACTIONS (2)
  - DRUG INTOLERANCE [None]
  - GASTRIC DISORDER [None]
